FAERS Safety Report 19265158 (Version 1)
Quarter: 2021Q2

REPORT INFORMATION
  Report Type: Spontaneous
  Country: US (occurrence: US)
  Receive Date: 20210517
  Receipt Date: 20210517
  Transmission Date: 20210717
  Serious: No
  Sender: FDA-Public Use
  Company Number: NVSC2021US103389

PATIENT
  Sex: Female

DRUGS (1)
  1. RECLAST [Suspect]
     Active Substance: ZOLEDRONIC ACID
     Indication: PRODUCT USED FOR UNKNOWN INDICATION
     Dosage: UNK
     Route: 065

REACTIONS (7)
  - Hypoaesthesia [Unknown]
  - Influenza like illness [Unknown]
  - Depression [Unknown]
  - Illness [Unknown]
  - Arthritis [Unknown]
  - Somnolence [Unknown]
  - Grip strength decreased [Unknown]
